FAERS Safety Report 8606916-4 (Version None)
Quarter: 2012Q3

REPORT INFORMATION
  Report Type: 
  Country: None (occurrence: None)
  Receive Date: 20120820
  Receipt Date: 20120809
  Transmission Date: 20120928
  Serious: Yes (Death)
  Sender: FDA-Public Use
  Company Number: JP-BAXTER-2012BAX012891

PATIENT
  Sex: Male
  Weight: 67.4 kg

DRUGS (4)
  1. CATABON [Concomitant]
     Route: 042
     Dates: start: 20120715, end: 20120724
  2. PREDNISOLONE [Concomitant]
     Route: 048
     Dates: start: 20120724, end: 20120724
  3. SULPERAZON [Concomitant]
     Route: 042
     Dates: start: 20120724, end: 20120724
  4. FEIBA [Suspect]
     Route: 042
     Dates: start: 20120724, end: 20120724

REACTIONS (2)
  - RESPIRATORY ARREST [None]
  - BLOOD PRESSURE DECREASED [None]
